FAERS Safety Report 17853414 (Version 2)
Quarter: 2020Q4

REPORT INFORMATION
  Report Type: Spontaneous
  Country: US (occurrence: US)
  Receive Date: 20200603
  Receipt Date: 20201206
  Transmission Date: 20210113
  Serious: No
  Sender: FDA-Public Use
  Company Number: US-LUPIN PHARMACEUTICALS INC.-2020-02155

PATIENT
  Age: 20 Year
  Sex: Female
  Weight: 58.96 kg

DRUGS (1)
  1. TRI-LO-MARZIA [Suspect]
     Active Substance: ETHINYL ESTRADIOL\NORGESTIMATE
     Indication: CONTRACEPTION
     Dosage: 1 DOSAGE FORM, QD (DOSE: 0.18,0.215,0.25MG/0.025)
     Route: 048
     Dates: start: 2019

REACTIONS (4)
  - Anxiety [Recovering/Resolving]
  - Heart rate increased [Recovering/Resolving]
  - Product administration error [Unknown]
  - Dyspnoea [Recovering/Resolving]

NARRATIVE: CASE EVENT DATE: 20200423
